FAERS Safety Report 21949512 (Version 2)
Quarter: 2023Q1

REPORT INFORMATION
  Report Type: Spontaneous
  Country: US (occurrence: US)
  Receive Date: 20230203
  Receipt Date: 20230210
  Transmission Date: 20230417
  Serious: Yes (Other)
  Sender: FDA-Public Use
  Company Number: US-ELI_LILLY_AND_COMPANY-US202301011728

PATIENT
  Age: 58 Year
  Sex: Female

DRUGS (1)
  1. MOUNJARO [Suspect]
     Active Substance: TIRZEPATIDE
     Indication: Weight decreased
     Dosage: 5 MG, UNKNOWN
     Route: 065

REACTIONS (10)
  - Pancreatitis [Unknown]
  - Headache [Unknown]
  - Back pain [Unknown]
  - Off label use [Unknown]
  - Feeling abnormal [Unknown]
  - Gastrointestinal pain [Unknown]
  - Nausea [Unknown]
  - Abdominal pain [Unknown]
  - Eructation [Not Recovered/Not Resolved]
  - Hypersensitivity [Unknown]

NARRATIVE: CASE EVENT DATE: 20230115
